FAERS Safety Report 10219811 (Version 2)
Quarter: 2014Q2

REPORT INFORMATION
  Report Type: Spontaneous
  Country: MY (occurrence: MY)
  Receive Date: 20140605
  Receipt Date: 20140605
  Transmission Date: 20141212
  Serious: Yes (Other)
  Sender: FDA-Public Use
  Company Number: ALCN2014MY003230

PATIENT
  Age: 26 Day
  Sex: Male
  Weight: 2.12 kg

DRUGS (1)
  1. CYCLOMYDRIL [Suspect]
     Indication: RETINOPATHY OF PREMATURITY
     Dosage: 2 GTTS 20 MINUTES APART
     Route: 047
     Dates: start: 20130327, end: 20130327

REACTIONS (2)
  - Respiration abnormal [Not Recovered/Not Resolved]
  - Oxygen saturation decreased [Not Recovered/Not Resolved]
